FAERS Safety Report 7120808-1 (Version None)
Quarter: 2010Q4

REPORT INFORMATION
  Report Type: 
  Country: None (occurrence: None)
  Receive Date: 20101118
  Receipt Date: 20101118
  Transmission Date: 20110411
  Serious: Yes (Life-Threatening, Hospitalization, Other)
  Sender: FDA-Public Use
  Company Number: None

PATIENT

DRUGS (1)
  1. INTRAMAX 10,572 MG DRUCKER LABS [Suspect]

REACTIONS (1)
  - NO ADVERSE EVENT [None]
